FAERS Safety Report 5359165-X (Version None)
Quarter: 2007Q2

REPORT INFORMATION
  Report Type: 
  Country: None (occurrence: None)
  Receive Date: 20070530
  Receipt Date: 20070206
  Transmission Date: 20071010
  Serious: No
  Sender: FDA-Public Use
  Company Number: 2007PV029679

PATIENT
  Age: 63 Year
  Sex: Female

DRUGS (5)
  1. BYETTA [Suspect]
     Indication: DIABETES MELLITUS NON-INSULIN-DEPENDENT
     Dosage: 5 MCG;BID;SC
     Route: 058
     Dates: start: 20070203, end: 20070205
  2. ACTOS [Concomitant]
  3. GLUCOPHAGE [Concomitant]
  4. MAGNESIUM SULFATE [Concomitant]
  5. PROZAC [Concomitant]

REACTIONS (7)
  - CRYING [None]
  - DIARRHOEA [None]
  - FAECAL INCONTINENCE [None]
  - FIBROMYALGIA [None]
  - NERVOUSNESS [None]
  - PANIC ATTACK [None]
  - STOMACH DISCOMFORT [None]
